FAERS Safety Report 9749037 (Version 1)
Quarter: 2013Q4

REPORT INFORMATION
  Report Type: Spontaneous
  Country: US (occurrence: US)
  Receive Date: 20131212
  Receipt Date: 20131212
  Transmission Date: 20140711
  Serious: No
  Sender: FDA-Public Use
  Company Number: US-INCYTE CORPORATION-2013IN002267

PATIENT
  Age: 49 Year
  Sex: Female

DRUGS (22)
  1. JAKAFI [Suspect]
     Indication: MYELOFIBROSIS
     Dosage: 20 MG, BID
     Route: 048
     Dates: start: 201112
  2. JAKAFI [Suspect]
     Dosage: 5 MG, QD
     Route: 048
     Dates: end: 20130923
  3. LEVEMIR [Concomitant]
  4. HUMALOG [Concomitant]
  5. PROAIR [Concomitant]
  6. LIVALO [Concomitant]
  7. CHLORPROMAZINE [Concomitant]
  8. MS CONTIN [Concomitant]
  9. CLINDAMYCIN [Concomitant]
  10. HYDROXYUREA [Concomitant]
  11. LEVOTHYROXINE [Concomitant]
  12. GABAPENTIN [Concomitant]
  13. PREMARIN [Concomitant]
  14. CALCIUM [Concomitant]
  15. NITROGLYCERIN [Concomitant]
  16. ALBUTEROL [Concomitant]
  17. VITAMIN B12 [Concomitant]
  18. ASPIRIN [Concomitant]
  19. FISH OIL [Concomitant]
  20. VITAMIN B [Concomitant]
  21. VITAMIN C [Concomitant]
  22. VITAMIN E [Concomitant]

REACTIONS (4)
  - Bone pain [Unknown]
  - Pruritus [Unknown]
  - Splenomegaly [Unknown]
  - Drug ineffective [Unknown]
